FAERS Safety Report 5113632-2 (Version None)
Quarter: 2006Q3

REPORT INFORMATION
  Report Type: 
  Country: None (occurrence: None)
  Receive Date: 20060925
  Receipt Date: 20060912
  Transmission Date: 20061208
  Serious: Yes (Other)
  Sender: FDA-Public Use
  Company Number: PHBS2006IN13963

PATIENT
  Age: 18 Year
  Sex: Female

DRUGS (3)
  1. CLOZAPINE [Suspect]
     Dosage: 300 MG, QHS
     Route: 065
  2. CLOZAPINE [Suspect]
     Dosage: 25 MG/D
     Route: 065
  3. CLOZAPINE [Suspect]
     Dosage: 300 MG, QHS
     Route: 065

REACTIONS (2)
  - EYE ROLLING [None]
  - OCULOGYRATION [None]
